FAERS Safety Report 12308533 (Version 1)
Quarter: 2016Q2

REPORT INFORMATION
  Report Type: Report from Study
  Country: RU (occurrence: RU)
  Receive Date: 20160427
  Receipt Date: 20160427
  Transmission Date: 20160815
  Serious: Yes (Other)
  Sender: FDA-Public Use
  Company Number: RU-ROCHE-1746125

PATIENT

DRUGS (10)
  1. METHOTREXATE [Suspect]
     Active Substance: METHOTREXATE
     Dosage: DAY +3
     Route: 065
  2. ANTI-THYMOCYTE GLOBULIN (RABBIT) NOS [Suspect]
     Active Substance: LAPINE T-LYMPHOCYTE IMMUNE GLOBULIN
     Indication: PROPHYLAXIS AGAINST GRAFT VERSUS HOST DISEASE
     Dosage: FROM DAY -3 UNTIL DAY -1
     Route: 065
  3. BUSULFAN. [Suspect]
     Active Substance: BUSULFAN
     Route: 048
  4. TACROLIMUS. [Suspect]
     Active Substance: TACROLIMUS
     Indication: PROPHYLAXIS AGAINST GRAFT VERSUS HOST DISEASE
     Dosage: TARGET CONCENTRATION OF 5 TO 15 NG/ML STARTING ON DAY +5 AND CONTINUING TO DAY +120, IN ATG GROUP, W
     Route: 065
  5. FLUDARABINE [Suspect]
     Active Substance: FLUDARABINE PHOSPHATE
     Indication: BONE MARROW FAILURE
     Route: 065
  6. METHOTREXATE [Suspect]
     Active Substance: METHOTREXATE
     Indication: PROPHYLAXIS AGAINST GRAFT VERSUS HOST DISEASE
     Dosage: ON DAY -1
     Route: 065
  7. CYCLOPHOSPHAMIDE. [Suspect]
     Active Substance: CYCLOPHOSPHAMIDE
     Dosage: 100 TO 120 MG/KG AND REDUCED-INTENSITY CONDITIONING (RIC) FOR MYELOABLATIVE CONDITIONING.
     Route: 065
  8. MYCOPHENOLATE MOFETIL. [Suspect]
     Active Substance: MYCOPHENOLATE MOFETIL
     Indication: PROPHYLAXIS AGAINST GRAFT VERSUS HOST DISEASE
     Dosage: 30 MG/KG FOR 10/10 HLA MATCHED UNRELATED DONORS AND 45 MG/KG FOR 8-9/10 MISMATCHED UNRELATED DONORS
     Route: 065
  9. BUSULFAN. [Suspect]
     Active Substance: BUSULFAN
     Indication: BONE MARROW FAILURE
     Route: 048
  10. CYCLOPHOSPHAMIDE. [Suspect]
     Active Substance: CYCLOPHOSPHAMIDE
     Indication: PROPHYLAXIS AGAINST GRAFT VERSUS HOST DISEASE
     Dosage: DAY +3 AND +4
     Route: 065

REACTIONS (10)
  - Mucosal inflammation [Unknown]
  - Sepsis [Unknown]
  - Neurotoxicity [Unknown]
  - Cytomegalovirus infection [Unknown]
  - Microangiopathy [Unknown]
  - Venoocclusive disease [Unknown]
  - Nephropathy toxic [Unknown]
  - Systemic mycosis [Unknown]
  - Cystitis haemorrhagic [Unknown]
  - Hepatitis toxic [Unknown]
